FAERS Safety Report 24284813 (Version 1)
Quarter: 2024Q3

REPORT INFORMATION
  Report Type: Report from Study
  Country: CA (occurrence: CA)
  Receive Date: 20240905
  Receipt Date: 20240905
  Transmission Date: 20241017
  Serious: Yes (Disabling, Other)
  Sender: SAMSUNG BIOEPIS
  Company Number: CA-SAMSUNG BIOEPIS-SB-2024-24544

PATIENT
  Age: 46 Year
  Sex: Female
  Weight: 60 kg

DRUGS (1)
  1. RENFLEXIS [Suspect]
     Active Substance: INFLIXIMAB-ABDA
     Indication: Sarcoidosis
     Route: 042
     Dates: start: 20240517

REACTIONS (18)
  - Syncope [Unknown]
  - Disability [Unknown]
  - Weight decreased [Unknown]
  - Menopausal symptoms [Unknown]
  - Platelet count decreased [Recovered/Resolved]
  - Petechiae [Unknown]
  - Contusion [Recovered/Resolved]
  - Epistaxis [Recovered/Resolved]
  - Migraine [Unknown]
  - Aura [Unknown]
  - Derealisation [Unknown]
  - Depression [Unknown]
  - Anxiety [Unknown]
  - Agitation [Recovering/Resolving]
  - Affect lability [Recovering/Resolving]
  - Asthenia [Unknown]
  - Tremor [Unknown]
  - Off label use [Unknown]

NARRATIVE: CASE EVENT DATE: 20240701
